FAERS Safety Report 14337433 (Version 2)
Quarter: 2018Q1

REPORT INFORMATION
  Report Type: Spontaneous
  Country: US (occurrence: US)
  Receive Date: 20171229
  Receipt Date: 20180202
  Transmission Date: 20180509
  Serious: Yes (Hospitalization, Other)
  Sender: FDA-Public Use
  Company Number: US-PFIZER INC-2017553352

PATIENT
  Age: 29 Year
  Sex: Female
  Weight: 81 kg

DRUGS (4)
  1. XOPENEX [Concomitant]
     Active Substance: LEVALBUTEROL HYDROCHLORIDE
     Indication: ASTHMA
     Dosage: 45 UG, MAYBE TWICE A WEEK
     Route: 055
     Dates: start: 2006
  2. ADVIL [Suspect]
     Active Substance: IBUPROFEN
     Indication: TENSION HEADACHE
     Dosage: TWO GEL CAPSULES MAY 1 OR 2X/MONTH
     Route: 048
  3. ADVIL [Suspect]
     Active Substance: IBUPROFEN
     Dosage: 400 MG, ONCE A WEEK OR EVERY OTHER WEEK
     Route: 048
     Dates: start: 2016, end: 20171110
  4. ADVAIR HFA [Concomitant]
     Active Substance: FLUTICASONE PROPIONATE\SALMETEROL XINAFOATE
     Indication: ASTHMA
     Dosage: 250 MG, 1X/DAY
     Route: 055
     Dates: start: 2006

REACTIONS (15)
  - Asthenia [Unknown]
  - Gastric dilatation [Not Recovered/Not Resolved]
  - Swelling face [Unknown]
  - Constipation [Not Recovered/Not Resolved]
  - Weight decreased [Not Recovered/Not Resolved]
  - Ill-defined disorder [Not Recovered/Not Resolved]
  - Dizziness [Unknown]
  - Gastritis [Not Recovered/Not Resolved]
  - Loss of consciousness [Unknown]
  - Dyspnoea [Not Recovered/Not Resolved]
  - Abdominal discomfort [Not Recovered/Not Resolved]
  - Mastication disorder [Unknown]
  - Gastric disorder [Not Recovered/Not Resolved]
  - Dyspepsia [Not Recovered/Not Resolved]
  - Eating disorder [Not Recovered/Not Resolved]

NARRATIVE: CASE EVENT DATE: 20170805
